FAERS Safety Report 25025638 (Version 1)
Quarter: 2025Q1

REPORT INFORMATION
  Report Type: Spontaneous
  Country: SE (occurrence: SE)
  Receive Date: 20250228
  Receipt Date: 20250228
  Transmission Date: 20250409
  Serious: Yes (Life-Threatening)
  Sender: ABBVIE
  Company Number: None

PATIENT
  Age: 74 Year
  Sex: Male

DRUGS (4)
  1. ASACOL [Suspect]
     Active Substance: MESALAMINE
     Indication: Colitis ulcerative
     Dosage: 2 TABLETS 2 TIMES DAILY
     Route: 065
     Dates: start: 20240923, end: 20250219
  2. BUDESONIDE [Concomitant]
     Active Substance: BUDESONIDE
     Indication: Product used for unknown indication
     Route: 065
  3. BRICANYL [Concomitant]
     Active Substance: TERBUTALINE SULFATE
     Indication: Product used for unknown indication
     Route: 065
  4. ETHYLMORPHINE HYDROCHLORIDE\HERBALS [Concomitant]
     Active Substance: ETHYLMORPHINE HYDROCHLORIDE\HERBALS
     Indication: Product used for unknown indication
     Route: 065

REACTIONS (1)
  - Interstitial lung disease [Not Recovered/Not Resolved]

NARRATIVE: CASE EVENT DATE: 20250219
